FAERS Safety Report 4443202-0 (Version None)
Quarter: 2004Q3

REPORT INFORMATION
  Report Type: 
  Country: None (occurrence: None)
  Receive Date: 20040903
  Receipt Date: 20040802
  Transmission Date: 20050211
  Serious: Yes (Other)
  Sender: FDA-Public Use
  Company Number: 2004UW13607

PATIENT
  Age: 53 Year
  Sex: Female
  Weight: 92.5338 kg

DRUGS (5)
  1. CRESTOR [Suspect]
     Indication: BLOOD CHOLESTEROL INCREASED
     Dosage: 20 MG QD PO
     Route: 048
     Dates: start: 20031016
  2. COUMADIN [Concomitant]
  3. INDERAL LA [Concomitant]
  4. DYAZIDE [Concomitant]
  5. MULTIVITAMIN [Concomitant]

REACTIONS (1)
  - AMNESIA [None]
